FAERS Safety Report 4434584-4 (Version None)
Quarter: 2004Q3

REPORT INFORMATION
  Report Type: 
  Country: None (occurrence: None)
  Receive Date: 20040721
  Receipt Date: 20031013
  Transmission Date: 20050211
  Serious: Yes (Life-Threatening)
  Sender: FDA-Public Use
  Company Number: WAES 0310USA01742

PATIENT
  Sex: Male

DRUGS (2)
  1. VIOXX [Suspect]
     Indication: GOUT
     Dosage: 50 MG/DAILY/PO
     Route: 048
  2. ANTIMICROBIAL (UNSPECIFIED) [Concomitant]

REACTIONS (1)
  - GASTROINTESTINAL HAEMORRHAGE [None]
